FAERS Safety Report 7586724-6 (Version None)
Quarter: 2011Q3

REPORT INFORMATION
  Report Type: 
  Country: None (occurrence: None)
  Receive Date: 20110701
  Receipt Date: 20110624
  Transmission Date: 20111222
  Serious: Yes (Disabling)
  Sender: FDA-Public Use
  Company Number: US-MERCK-1106USA00948

PATIENT
  Age: 62 Year
  Sex: Female

DRUGS (4)
  1. VITAMIN D (UNSPECIFIED) [Concomitant]
     Route: 048
  2. CALCIUM CARBONATE [Concomitant]
     Route: 048
  3. FOSAMAX [Suspect]
     Route: 048
     Dates: start: 19950101, end: 20010101
  4. FOSAMAX [Suspect]
     Route: 048
     Dates: start: 20010101, end: 20080101

REACTIONS (1)
  - STRESS FRACTURE [None]
